FAERS Safety Report 24282952 (Version 2)
Quarter: 2024Q3

REPORT INFORMATION
  Report Type: Spontaneous
  Country: US (occurrence: US)
  Receive Date: 20240904
  Receipt Date: 20240923
  Transmission Date: 20241016
  Serious: Yes (Other)
  Sender: NIVAGEN PHARMACEUTICALS
  Company Number: US-NPI-000036

PATIENT
  Age: 39 Year
  Sex: Male
  Weight: 113 kg

DRUGS (1)
  1. HYDROCORTISONE ACETATE [Suspect]
     Active Substance: HYDROCORTISONE ACETATE
     Indication: Haemorrhoids
     Dosage: ONE IN THE MORNING AND AT NIGHT
     Route: 054
     Dates: start: 20240823, end: 202408

REACTIONS (5)
  - Intestinal haemorrhage [Recovering/Resolving]
  - Internal haemorrhage [Recovering/Resolving]
  - Gastrointestinal disorder [Not Recovered/Not Resolved]
  - Haemorrhage [Recovering/Resolving]
  - Stress [Unknown]

NARRATIVE: CASE EVENT DATE: 20240801
